FAERS Safety Report 4754496-6 (Version None)
Quarter: 2005Q3

REPORT INFORMATION
  Report Type: 
  Country: None (occurrence: None)
  Receive Date: 20050829
  Receipt Date: 20050824
  Transmission Date: 20060218
  Serious: Yes (Life-Threatening, Hospitalization)
  Sender: FDA-Public Use
  Company Number: 2005PK01554

PATIENT
  Age: 23545 Day
  Sex: Female
  Weight: 79.7 kg

DRUGS (2)
  1. SEROQUEL [Suspect]
     Indication: BIPOLAR DISORDER
     Route: 048
     Dates: start: 20050625, end: 20050822
  2. CLOPIDOGREL BISULFATE [Concomitant]
     Indication: BRAIN STEM SYNDROME
     Dates: start: 20050819, end: 20050821

REACTIONS (6)
  - AGITATION [None]
  - CONVULSION [None]
  - DISTURBANCE IN ATTENTION [None]
  - HYPONATRAEMIA [None]
  - POLYDIPSIA PSYCHOGENIC [None]
  - RESTLESSNESS [None]
